FAERS Safety Report 12913472 (Version 1)
Quarter: 2016Q4

REPORT INFORMATION
  Report Type: Spontaneous
  Country: US (occurrence: US)
  Receive Date: 20161104
  Receipt Date: 20161104
  Transmission Date: 20170207
  Serious: Yes (Hospitalization)
  Sender: FDA-Public Use
  Company Number: US-MALLINCKRODT-T201604000

PATIENT
  Age: 8 Year
  Sex: Female

DRUGS (15)
  1. MONTELUKAST SODIUM. [Concomitant]
     Active Substance: MONTELUKAST SODIUM
     Dosage: 4 MG, 2 TABS DAILY AT BEDTIME
  2. ACETAMINOPHEN. [Concomitant]
     Active Substance: ACETAMINOPHEN
     Dosage: 240 MG EVERY 4 H
  3. AZITHROMYCIN ANHYDROUS. [Concomitant]
     Active Substance: AZITHROMYCIN ANHYDROUS
     Dosage: 100 MG EVERY MONDAY, WEDNESDAY, FRIDAY
  4. GABLOFEN [Suspect]
     Active Substance: BACLOFEN
     Indication: MUSCLE SPASTICITY
     Dosage: 174 MCG/DAY AT A CONCENTRATION OF 2000 MCG/ML
     Route: 037
  5. ALBUTEROL SULFATE. [Concomitant]
     Active Substance: ALBUTEROL SULFATE
     Dosage: 2.5 MG EVERY 4 H
  6. GABLOFEN [Suspect]
     Active Substance: BACLOFEN
     Dosage: 150 MCG/DAY AT A CONCENTRATION OF 500 MCG/ML
     Route: 037
     Dates: start: 201503
  7. LANSOPRAZOLE. [Concomitant]
     Active Substance: LANSOPRAZOLE
     Dosage: 50 MG DAILY AT BEDTIME
  8. GABLOFEN [Suspect]
     Active Substance: BACLOFEN
     Dosage: 3 MCG/DAY AT A CONCENTRATION OF 500 MCG/ML
     Route: 037
  9. BACLOFEN. [Concomitant]
     Active Substance: BACLOFEN
     Indication: MUSCLE SPASTICITY
     Dosage: 10 MG EVERY 4 HOURS AS NEEDED
  10. ATROPINE SULFATE. [Concomitant]
     Active Substance: ATROPINE SULFATE
     Dosage: 2 DROPS THREE TIMES DAILY
     Route: 002
  11. POLYETHYLENE GLYCOL [Concomitant]
     Active Substance: POLYETHYLENE GLYCOLS
     Dosage: 12.5 ML AT BEDTIME
  12. BUDESONIDE. [Concomitant]
     Active Substance: BUDESONIDE
     Dosage: 0.5 MG DAILY IN THE MORNING
  13. DIAZEPAM. [Concomitant]
     Active Substance: DIAZEPAM
     Dosage: 7.5 MG GEL DAILY AS NEEDED, MAY REPEAT WITH 5 MG
     Route: 054
  14. IBUPROFEN. [Concomitant]
     Active Substance: IBUPROFEN
     Dosage: 240 MG EVERY 6 HOURS
  15. ORAPRED [Concomitant]
     Active Substance: PREDNISOLONE SODIUM PHOSPHATE
     Dosage: 7.5 ML TWICE DAILY X 5 DAYS DURING ILLNESS

REACTIONS (12)
  - Muscle spasticity [Unknown]
  - Clonus [Unknown]
  - Heart rate increased [Recovered/Resolved]
  - Musculoskeletal stiffness [Unknown]
  - Salivary hypersecretion [Unknown]
  - Hypertonia [Unknown]
  - Dyskinesia [Recovered/Resolved]
  - Sedation [Unknown]
  - Muscle twitching [Unknown]
  - Discomfort [Recovered/Resolved]
  - Flushing [Recovered/Resolved]
  - Irritability [Unknown]

NARRATIVE: CASE EVENT DATE: 20150119
